FAERS Safety Report 11228490 (Version 1)
Quarter: 2015Q2

REPORT INFORMATION
  Report Type: Spontaneous
  Country: GB (occurrence: None)
  Receive Date: 20150626
  Receipt Date: 20150626
  Transmission Date: 20150821
  Serious: Yes (Other)
  Sender: FDA-Public Use
  Company Number: GB-H14001-15-00822

PATIENT
  Age: 17 Day
  Sex: Female
  Weight: .6 kg

DRUGS (6)
  1. NEOPROFEN [Suspect]
     Active Substance: IBUPROFEN LYSINE
     Indication: PATENT DUCTUS ARTERIOSUS
     Route: 041
     Dates: start: 20150324, end: 20150324
  2. CAFFEINE. [Concomitant]
     Active Substance: CAFFEINE
  3. CEFOTAXIME [Suspect]
     Active Substance: CEFOTAXIME\CEFOTAXIME SODIUM
     Indication: SEPSIS NEONATAL
     Dosage: 150 MG/KG (50 MG/KG,3 IN 1 D)
     Dates: start: 20150320, end: 20150403
  4. MORPHINE [Concomitant]
     Active Substance: MORPHINE
  5. FLUCONAZOLE. [Concomitant]
     Active Substance: FLUCONAZOLE
  6. VANCOMYCIN (VANCOMYCIN) (UNKNOWN) (VANCOMYCIN) [Suspect]
     Active Substance: VANCOMYCIN
     Indication: SEPSIS NEONATAL
     Dosage: 24 MG/KG (1 MG/KG, 1 IN 1 HR)
     Dates: start: 20150329, end: 20150408

REACTIONS (2)
  - Renal failure neonatal [None]
  - Neonatal hypotension [None]

NARRATIVE: CASE EVENT DATE: 201503
